FAERS Safety Report 7940268-8 (Version None)
Quarter: 2011Q4

REPORT INFORMATION
  Report Type: 
  Country: None (occurrence: None)
  Receive Date: 20111126
  Receipt Date: 20110923
  Transmission Date: 20120403
  Serious: No
  Sender: FDA-Public Use
  Company Number: US-BAYER-2011-091785

PATIENT
  Age: 76 Year
  Sex: Female
  Weight: 47 kg

DRUGS (4)
  1. ANTIBIOTICS [Concomitant]
  2. ALEVE (CAPLET) [Suspect]
     Indication: ARTHRALGIA
     Dosage: 2 DF, TID
     Route: 048
     Dates: start: 20110921, end: 20110923
  3. AMBIEN [Concomitant]
  4. LISINOPRIL [Concomitant]

REACTIONS (1)
  - NO ADVERSE EVENT [None]
